FAERS Safety Report 5767451-4 (Version None)
Quarter: 2008Q2

REPORT INFORMATION
  Report Type: 
  Country: None (occurrence: None)
  Receive Date: 20080612
  Receipt Date: 20080606
  Transmission Date: 20081010
  Serious: Yes (Life-Threatening, Other)
  Sender: FDA-Public Use
  Company Number: DE-BAYER-200815892GPV

PATIENT
  Age: 45 Year
  Sex: Female

DRUGS (3)
  1. MAGNEVIST [Suspect]
     Indication: NUCLEAR MAGNETIC RESONANCE IMAGING ABDOMINAL
     Dosage: TOTAL DAILY DOSE: 15 ML
     Route: 042
     Dates: start: 20070815, end: 20070815
  2. BUSCOPAN [Suspect]
     Indication: DRUG USE FOR UNKNOWN INDICATION
     Route: 042
  3. LUMIREM [Concomitant]
     Indication: NUCLEAR MAGNETIC RESONANCE IMAGING ABDOMINAL
     Dosage: TOTAL DAILY DOSE: 900 ML
     Route: 048
     Dates: start: 20070815, end: 20070815

REACTIONS (4)
  - ANGIOEDEMA [None]
  - COELIAC DISEASE [None]
  - MILK ALLERGY [None]
  - RASH [None]
